FAERS Safety Report 8263221-6 (Version None)
Quarter: 2012Q1

REPORT INFORMATION
  Report Type: 
  Country: None (occurrence: None)
  Receive Date: 20120327
  Receipt Date: 20110502
  Transmission Date: 20120608
  Serious: Yes (Other)
  Sender: FDA-Public Use
  Company Number: PHHY2011US37016

PATIENT
  Age: 58 Year
  Sex: Female
  Weight: 86.2 kg

DRUGS (7)
  1. GLEEVEC [Suspect]
     Dosage: 400 MG, QD, ORAL
     Route: 048
  2. VICODIN [Concomitant]
  3. MOTRIN [Concomitant]
  4. BONINE (MECLOZINE HYDROCHLORIDE) [Concomitant]
  5. BENADRYL [Concomitant]
  6. ADDERALL 10 [Concomitant]
  7. SYNTHROID [Concomitant]

REACTIONS (6)
  - CHILLS [None]
  - NAUSEA [None]
  - PHARYNGITIS [None]
  - OEDEMA [None]
  - EAR INFECTION [None]
  - WHITE BLOOD CELL DISORDER [None]
